FAERS Safety Report 4515228-X (Version None)
Quarter: 2004Q4

REPORT INFORMATION
  Report Type: 
  Country: None (occurrence: None)
  Receive Date: 20041201
  Receipt Date: 20041125
  Transmission Date: 20050328
  Serious: Yes (Life-Threatening, Hospitalization)
  Sender: FDA-Public Use
  Company Number: FR-GLAXOSMITHKLINE-B0358481A

PATIENT
  Age: 42 Year
  Sex: Male
  Weight: 60 kg

DRUGS (7)
  1. AGENERASE [Suspect]
     Indication: HIV INFECTION
     Dosage: 600MG TWICE PER DAY
     Route: 048
     Dates: start: 20031202
  2. EPIVIR [Suspect]
     Indication: HIV INFECTION
     Dosage: 300MG PER DAY
     Route: 048
     Dates: start: 20031202
  3. NORVIR [Suspect]
     Indication: HIV INFECTION
     Dosage: 100MG PER DAY
     Route: 048
     Dates: start: 20031202
  4. DIDANOSINE [Suspect]
     Indication: HIV INFECTION
     Dosage: 400MG PER DAY
     Route: 048
     Dates: start: 19970922, end: 20021115
  5. NEVIRAPINE [Suspect]
     Indication: HIV INFECTION
     Dosage: 200MG TWICE PER DAY
     Route: 048
     Dates: start: 19981012, end: 20030130
  6. STAVUDINE [Suspect]
     Indication: HIV INFECTION
     Dosage: 40MG TWICE PER DAY
     Route: 048
     Dates: start: 19970922, end: 20021115
  7. VIREAD [Suspect]
     Indication: HIV INFECTION
     Dosage: 300MG PER DAY
     Route: 048
     Dates: start: 20031202

REACTIONS (4)
  - HAEMATEMESIS [None]
  - HAEMOGLOBIN DECREASED [None]
  - HEPATIC FIBROSIS [None]
  - OESOPHAGEAL VARICES HAEMORRHAGE [None]
